FAERS Safety Report 7699013-6 (Version None)
Quarter: 2011Q3

REPORT INFORMATION
  Report Type: 
  Country: None (occurrence: None)
  Receive Date: 20110819
  Receipt Date: 20110812
  Transmission Date: 20111222
  Serious: Yes (Other)
  Sender: FDA-Public Use
  Company Number: US-ROCHE-766872

PATIENT
  Sex: Male
  Weight: 63.5 kg

DRUGS (2)
  1. ACCUTANE [Suspect]
     Route: 065
     Dates: start: 20020101
  2. ACCUTANE [Suspect]
     Indication: ACNE
     Route: 065
     Dates: start: 19871108, end: 19880131

REACTIONS (12)
  - ARTHRITIS [None]
  - BLOOD TRIGLYCERIDES INCREASED [None]
  - SUICIDAL IDEATION [None]
  - NIGHT BLINDNESS [None]
  - DEPRESSION [None]
  - COLONIC POLYP [None]
  - OSTEOPENIA [None]
  - CROHN'S DISEASE [None]
  - INFLAMMATORY BOWEL DISEASE [None]
  - INJURY [None]
  - COLITIS ULCERATIVE [None]
  - OSTEONECROSIS [None]
